FAERS Safety Report 14494857 (Version 2)
Quarter: 2018Q1

REPORT INFORMATION
  Report Type: Spontaneous
  Country: FI (occurrence: FI)
  Receive Date: 20180206
  Receipt Date: 20180328
  Transmission Date: 20180509
  Serious: Yes (Life-Threatening)
  Sender: FDA-Public Use
  Company Number: FI-GUERBET-FI-20180001

PATIENT
  Age: 52 Year
  Sex: Male

DRUGS (7)
  1. EMCONCOR [Concomitant]
     Active Substance: BISOPROLOL FUMARATE
     Indication: PRODUCT USED FOR UNKNOWN INDICATION
     Route: 048
     Dates: start: 2000
  2. PANADOL [Concomitant]
     Active Substance: ACETAMINOPHEN
     Indication: PRODUCT USED FOR UNKNOWN INDICATION
     Route: 048
     Dates: start: 2008
  3. LYRICA [Concomitant]
     Active Substance: PREGABALIN
     Indication: PRODUCT USED FOR UNKNOWN INDICATION
     Route: 048
     Dates: start: 20100215
  4. ARTIREM [Suspect]
     Active Substance: GADOTERATE MEGLUMINE
     Indication: PRODUCT USED FOR UNKNOWN INDICATION
     Route: 014
     Dates: start: 20100428, end: 20100428
  5. PONSTAN FORTE [Suspect]
     Active Substance: MEFENAMIC ACID
     Indication: PRODUCT USED FOR UNKNOWN INDICATION
     Route: 048
     Dates: start: 20100219, end: 20100605
  6. ATACAND [Concomitant]
     Active Substance: CANDESARTAN CILEXETIL
     Indication: PRODUCT USED FOR UNKNOWN INDICATION
     Route: 048
     Dates: start: 2000
  7. PRIMASPAN [Concomitant]
     Active Substance: ASPIRIN
     Indication: PRODUCT USED FOR UNKNOWN INDICATION
     Route: 048
     Dates: start: 1982

REACTIONS (2)
  - Rash [Recovered/Resolved with Sequelae]
  - Organising pneumonia [Recovered/Resolved with Sequelae]

NARRATIVE: CASE EVENT DATE: 20100601
